FAERS Safety Report 18425520 (Version 1)
Quarter: 2020Q4

REPORT INFORMATION
  Report Type: Spontaneous
  Country: US (occurrence: US)
  Receive Date: 20201024
  Receipt Date: 20201024
  Transmission Date: 20210114
  Serious: No
  Sender: FDA-Public Use
  Company Number: None

PATIENT
  Age: 65 Year
  Sex: Female

DRUGS (7)
  1. ACETAMINOPHEN 325 MG [Concomitant]
     Active Substance: ACETAMINOPHEN
     Dates: start: 20170817
  2. MIRTAZAPINE 7.5MG [Concomitant]
     Active Substance: MIRTAZAPINE
     Dates: start: 20170815
  3. DILTIAZEM 120 MG [Concomitant]
     Dates: start: 20180220
  4. CARAFATE 1G [Concomitant]
     Dates: start: 20170815
  5. TRAMADOL 50MG [Concomitant]
     Active Substance: TRAMADOL
     Dates: start: 20170815
  6. XGEVA [Concomitant]
     Active Substance: DENOSUMAB
     Dates: start: 20170815
  7. IBRANCE [Suspect]
     Active Substance: PALBOCICLIB
     Indication: BREAST CANCER
     Route: 048
     Dates: start: 20191015

REACTIONS (2)
  - Stomatitis [None]
  - White blood cell count decreased [None]

NARRATIVE: CASE EVENT DATE: 20201007
